FAERS Safety Report 21909524 (Version 1)
Quarter: 2023Q1

REPORT INFORMATION
  Report Type: Spontaneous
  Country: US (occurrence: None)
  Receive Date: 20230124
  Receipt Date: 20230124
  Transmission Date: 20230418
  Serious: Yes (Other)
  Sender: FDA-Public Use
  Company Number: None

PATIENT
  Age: 53 Year
  Sex: Female

DRUGS (6)
  1. OPSUMIT [Suspect]
     Active Substance: MACITENTAN
     Indication: Pulmonary arterial hypertension
     Dosage: FREQUENCY : DAILY;?
     Route: 048
     Dates: start: 20220401
  2. TADALAFIL [Concomitant]
  3. METHIMAZOLE [Concomitant]
     Active Substance: METHIMAZOLE
  4. METOPROLOL [Concomitant]
     Active Substance: METOPROLOL
  5. OMEPRAZOLE [Concomitant]
  6. NORCO [Concomitant]

REACTIONS (3)
  - Hepatic cancer [None]
  - Eructation [None]
  - Abdominal pain lower [None]

NARRATIVE: CASE EVENT DATE: 20230121
